FAERS Safety Report 17044581 (Version 5)
Quarter: 2020Q3

REPORT INFORMATION
  Report Type: Report from Study
  Country: US (occurrence: US)
  Receive Date: 20191118
  Receipt Date: 20200731
  Transmission Date: 20201102
  Serious: Yes (Other)
  Sender: FDA-Public Use
  Company Number: NVSC2019US039772

PATIENT
  Sex: Female
  Weight: 91.81 kg

DRUGS (3)
  1. GLEEVEC [Suspect]
     Active Substance: IMATINIB MESYLATE
     Dosage: 400 MG
     Route: 048
  2. SUTENT [Suspect]
     Active Substance: SUNITINIB MALATE
     Indication: GASTRIC CANCER
     Dosage: 25 MG, EACH DAY FOR TWO WEEKS ON, ONE WEEK
     Route: 048
  3. GLEEVEC [Suspect]
     Active Substance: IMATINIB MESYLATE
     Indication: PRODUCT USED FOR UNKNOWN INDICATION
     Dosage: UNK
     Route: 065

REACTIONS (10)
  - Rash pruritic [Unknown]
  - Alopecia [Unknown]
  - Memory impairment [Unknown]
  - Gastric cancer [Unknown]
  - Fluid retention [Unknown]
  - Weight increased [Unknown]
  - Deafness [Unknown]
  - Arthralgia [Not Recovered/Not Resolved]
  - Peripheral swelling [Unknown]
  - Lung neoplasm malignant [Unknown]

NARRATIVE: CASE EVENT DATE: 2020
